FAERS Safety Report 20010189 (Version 1)
Quarter: 2021Q4

REPORT INFORMATION
  Report Type: Spontaneous
  Country: TR (occurrence: TR)
  Receive Date: 20211028
  Receipt Date: 20211028
  Transmission Date: 20220303
  Serious: Yes (Other)
  Sender: FDA-Public Use
  Company Number: TR-NOVARTISPH-NVSC2021TR245238

PATIENT
  Age: 57 Year
  Sex: Male

DRUGS (1)
  1. METFORMIN HYDROCHLORIDE [Suspect]
     Active Substance: METFORMIN HYDROCHLORIDE
     Indication: Product used for unknown indication
     Dosage: (FOR 15 YERAS)
     Route: 065

REACTIONS (2)
  - Hallucination [Unknown]
  - Nightmare [Unknown]
